FAERS Safety Report 24369804 (Version 1)
Quarter: 2024Q3

REPORT INFORMATION
  Report Type: Spontaneous
  Country: GB (occurrence: GB)
  Receive Date: 20240927
  Receipt Date: 20240927
  Transmission Date: 20241017
  Serious: Yes (Other)
  Sender: ESPERION THERAPEUTICS
  Company Number: None

PATIENT
  Age: 60 Year
  Sex: Male
  Weight: 95 kg

DRUGS (12)
  1. BEMPEDOIC ACID\EZETIMIBE [Suspect]
     Active Substance: BEMPEDOIC ACID\EZETIMIBE
     Indication: Ill-defined disorder
     Dosage: UNK
     Route: 065
  2. CIPROFLOXACIN [Concomitant]
     Active Substance: CIPROFLOXACIN
     Indication: Ill-defined disorder
     Dosage: UNK UNK, BID (APPLY THE CONTENTS OF ONE VIAL TWICE A DAY TO T...)
     Route: 065
     Dates: start: 20240827, end: 20240903
  3. BECONASE AQ [Concomitant]
     Active Substance: BECLOMETHASONE DIPROPIONATE MONOHYDRATE
     Indication: Ill-defined disorder
     Dosage: UNK UNK, BID (ONE OR TWO SPRAYS TO EACH NOSTRIL TWICE DAILY A...)
     Route: 065
     Dates: start: 20230711
  4. SILDENAFIL [Concomitant]
     Active Substance: SILDENAFIL
     Indication: Ill-defined disorder
     Dosage: UNK (ONE TO BE TAKEN AS DIRECTED)
     Route: 065
     Dates: start: 20230711
  5. ALBUTEROL SULFATE [Concomitant]
     Active Substance: ALBUTEROL SULFATE
     Indication: Ill-defined disorder
     Dosage: UNK (TWO PUFFS TO BE INHALED FOUR TIMES DAILY WHEN R...)
     Route: 065
     Dates: start: 20230711
  6. AMLODIPINE [Concomitant]
     Active Substance: AMLODIPINE BESYLATE
     Indication: Ill-defined disorder
     Dosage: UNK UNK, QD (ONE TO BE TAKEN MORNING)
     Route: 065
     Dates: start: 20240222
  7. ASPIRIN [Concomitant]
     Active Substance: ASPIRIN
     Indication: Ill-defined disorder
     Dosage: UNK UNK, QD (ONE TO BE TAKEN DAILY)
     Route: 065
     Dates: start: 20240222
  8. CETIRIZINE [Concomitant]
     Active Substance: CETIRIZINE HYDROCHLORIDE
     Indication: Ill-defined disorder
     Dosage: UNK (ONE TO BE TAKEN DAILY WHEN REQUIRED)
     Route: 065
     Dates: start: 20240222
  9. OMEPRAZOLE [Concomitant]
     Active Substance: OMEPRAZOLE
     Indication: Ill-defined disorder
     Dosage: UNK (ONE TO BE TAKEN TWICE A DAY WHEN REQUIRED)
     Route: 065
     Dates: start: 20240222
  10. RAMIPRIL [Concomitant]
     Active Substance: RAMIPRIL
     Indication: Ill-defined disorder
     Dosage: UNK UNK, QD (ONE TO BE TAKEN AT NIGHT)
     Route: 065
     Dates: start: 20240222
  11. BEMPEDOIC ACID [Concomitant]
     Active Substance: BEMPEDOIC ACID
     Indication: Ill-defined disorder
     Dosage: UNK UNK, QD
     Route: 065
     Dates: start: 20240515, end: 20240913
  12. EZETIMIBE [Concomitant]
     Active Substance: EZETIMIBE
     Indication: Ill-defined disorder
     Dosage: UNK UNK, QD (ONE TO BE TAKEN DAILY)
     Route: 065
     Dates: start: 20240913

REACTIONS (3)
  - Chest pain [Recovering/Resolving]
  - Pulmonary pain [Unknown]
  - Dyspnoea [Unknown]
